FAERS Safety Report 15854609 (Version 3)
Quarter: 2023Q2

REPORT INFORMATION
  Report Type: Spontaneous
  Country: FR (occurrence: FR)
  Receive Date: 20190122
  Receipt Date: 20230508
  Transmission Date: 20230722
  Serious: Yes (Congenital Anomaly, Other)
  Sender: FDA-Public Use
  Company Number: FR-PFIZER INC-2019025346

PATIENT
  Sex: Male
  Weight: 2.805 kg

DRUGS (1)
  1. CYTOTEC [Suspect]
     Active Substance: MISOPROSTOL
     Dosage: 3 DF, UNK (3 TABS OF MISOPROSTOL)
     Route: 064

REACTIONS (3)
  - Maternal exposure during pregnancy [Recovering/Resolving]
  - Congenital hydrocephalus [Recovering/Resolving]
  - Congenital aqueductal stenosis [Recovering/Resolving]
